FAERS Safety Report 13435897 (Version 1)
Quarter: 2017Q2

REPORT INFORMATION
  Report Type: Spontaneous
  Country: US (occurrence: US)
  Receive Date: 20170412
  Receipt Date: 20170412
  Transmission Date: 20170830
  Serious: Yes (Disabling, Other)
  Sender: FDA-Public Use
  Company Number: None

PATIENT
  Age: 53 Year
  Sex: Female
  Weight: 55.8 kg

DRUGS (5)
  1. LEVOFLOXACIN. [Suspect]
     Active Substance: LEVOFLOXACIN
     Indication: SINUSITIS
     Dosage: ?          QUANTITY:10 TABLET(S);?
     Route: 048
     Dates: start: 20120215
  2. VITAMIN D [Concomitant]
     Active Substance: CHOLECALCIFEROL
  3. LEVOFLOXACIN. [Suspect]
     Active Substance: LEVOFLOXACIN
     Indication: SINUSITIS
     Dosage: ?          QUANTITY:10 TABLET(S);?
     Route: 048
     Dates: start: 20130802
  4. TUMERIC [Concomitant]
     Active Substance: HERBALS\TURMERIC
  5. BOSWELLIA [Concomitant]

REACTIONS (5)
  - Musculoskeletal pain [None]
  - Arthralgia [None]
  - Movement disorder [None]
  - Exercise tolerance decreased [None]
  - Tendon pain [None]

NARRATIVE: CASE EVENT DATE: 20160713
